FAERS Safety Report 8317914 (Version 12)
Quarter: 2012Q4

REPORT INFORMATION
  Report Type: Report from Study
  Country: DE (occurrence: DE)
  Receive Date: 20120102
  Receipt Date: 20121130
  Transmission Date: 20130627
  Serious: Yes (Life-Threatening, Hospitalization)
  Sender: FDA-Public Use
  Company Number: DE-ROCHE-1018683

PATIENT
  Age: 76 Year
  Sex: Female
  Weight: 74.4 kg

DRUGS (25)
  1. VEMURAFENIB [Suspect]
     Indication: METASTATIC MALIGNANT MELANOMA
     Dosage: Date of last dose prior to SAE: 12/Dec/2011
     Route: 048
     Dates: start: 20111122, end: 20111212
  2. VEMURAFENIB [Suspect]
     Dosage: reduced dose to 50 %; Date of last dose prior to SAE: 24/Dec/2011
     Route: 048
     Dates: start: 20111222, end: 20111224
  3. CONCOR 5 [Concomitant]
     Route: 065
     Dates: start: 201010
  4. COVERSUM [Concomitant]
     Route: 065
     Dates: start: 201010
  5. PENTALONG [Concomitant]
     Route: 065
     Dates: start: 201010
  6. XIPAMID [Concomitant]
     Route: 065
     Dates: start: 201010
  7. SPIRONOLACTON [Concomitant]
     Route: 065
     Dates: start: 201010
  8. TOREM [Concomitant]
     Route: 065
     Dates: start: 201010
  9. FALITHROM [Concomitant]
     Route: 065
     Dates: start: 201010
  10. ZOLPIDEM [Concomitant]
     Route: 065
     Dates: start: 201010
  11. ACTRAPHANE HM 30/70 [Concomitant]
     Route: 065
     Dates: start: 201010
  12. INEGY [Concomitant]
     Dosage: Inegy 10/40 mg
     Route: 065
     Dates: start: 20101031
  13. INEGY [Concomitant]
     Dosage: 10/20 mg
     Route: 065
     Dates: start: 20101031
  14. ASS [Concomitant]
     Route: 065
     Dates: start: 201010
  15. PANTOZOL [Concomitant]
     Route: 065
     Dates: start: 201112
  16. BISOPROLOL [Concomitant]
     Route: 065
     Dates: start: 201112
  17. RAMIPRIL [Concomitant]
     Route: 065
     Dates: start: 201112
  18. TORASEMID [Concomitant]
     Route: 065
     Dates: start: 201010
  19. PENTALONG [Concomitant]
     Route: 065
     Dates: start: 201010
  20. SPIRONOLACTON [Concomitant]
     Route: 065
     Dates: start: 201010
  21. DIGITOXIN [Concomitant]
     Route: 065
     Dates: start: 20101031
  22. ACTRAPID [Concomitant]
     Dosage: 20 IU/ML, Actrapid30/70
     Route: 065
     Dates: start: 201009
  23. LEVEMIR [Concomitant]
     Route: 065
     Dates: start: 201012
  24. LEVEMIR [Concomitant]
     Dosage: 12/unit
     Route: 065
     Dates: start: 201012
  25. MARCUMAR [Concomitant]
     Dosage: as needed
     Route: 065
     Dates: start: 201010

REACTIONS (2)
  - Pericardial haemorrhage [Recovered/Resolved with Sequelae]
  - General physical health deterioration [Recovered/Resolved]
